FAERS Safety Report 4726992-9 (Version None)
Quarter: 2005Q3

REPORT INFORMATION
  Report Type: 
  Country: None (occurrence: None)
  Receive Date: 20050728
  Receipt Date: 20050719
  Transmission Date: 20060218
  Serious: Yes (Other)
  Sender: FDA-Public Use
  Company Number: US-JNJFOC-20041206240

PATIENT
  Sex: Female
  Weight: 72.58 kg

DRUGS (5)
  1. REMICADE [Suspect]
     Indication: RHEUMATOID ARTHRITIS
     Dosage: 3 VIALS
     Route: 042
  2. PLAQUENIL [Concomitant]
  3. ZOLOFT [Concomitant]
     Indication: DEPRESSION
  4. ESTRADIOL;NORGESTIMATE [Concomitant]
  5. ESTRADIOL;NORGESTIMATE [Concomitant]
     Indication: OVARIAN FAILURE

REACTIONS (3)
  - LUPUS-LIKE SYNDROME [None]
  - OEDEMA PERIPHERAL [None]
  - PAIN [None]
